FAERS Safety Report 12115586 (Version 1)
Quarter: 2016Q1

REPORT INFORMATION
  Report Type: Spontaneous
  Country: US (occurrence: US)
  Receive Date: 20160225
  Receipt Date: 20160225
  Transmission Date: 20160526
  Serious: No
  Sender: FDA-Public Use
  Company Number: US-MYLANLABS-2015M1013911

PATIENT

DRUGS (1)
  1. AMNESTEEM [Suspect]
     Active Substance: ISOTRETINOIN
     Indication: ACNE
     Dosage: 10 MG, BID
     Route: 048
     Dates: start: 20140328, end: 20140828

REACTIONS (1)
  - Acne [Not Recovered/Not Resolved]
